FAERS Safety Report 5979284-4 (Version None)
Quarter: 2008Q4

REPORT INFORMATION
  Report Type: 
  Country: None (occurrence: None)
  Receive Date: 20081204
  Receipt Date: 20070925
  Transmission Date: 20090506
  Serious: No
  Sender: FDA-Public Use
  Company Number: US-ABBOTT-07P-163-0418675-00

PATIENT
  Sex: Female
  Weight: 81.72 kg

DRUGS (4)
  1. TRICOR [Suspect]
     Indication: BLOOD CHOLESTEROL INCREASED
     Route: 048
     Dates: start: 20070201
  2. TOPIRAMATE [Concomitant]
     Indication: HEADACHE
     Route: 048
  3. ROSUVASTATIN [Concomitant]
     Indication: BLOOD CHOLESTEROL
     Route: 048
     Dates: start: 20070916
  4. DULOXETINE HYDROCHLORIDE [Concomitant]
     Indication: DRUG USE FOR UNKNOWN INDICATION
     Route: 048

REACTIONS (2)
  - PHOTOSENSITIVITY REACTION [None]
  - PRURITUS GENERALISED [None]
